FAERS Safety Report 13912151 (Version 1)
Quarter: 2017Q3

REPORT INFORMATION
  Report Type: Spontaneous
  Country: US (occurrence: US)
  Receive Date: 20170828
  Receipt Date: 20170828
  Transmission Date: 20171127
  Serious: No
  Sender: FDA-Public Use
  Company Number: US-ROCHE-GNE324463

PATIENT
  Sex: Male
  Weight: 43 kg

DRUGS (4)
  1. NUTROPIN AQ [Suspect]
     Active Substance: SOMATROPIN
     Dosage: 1.0 MG, 1.8 MG DAILY
     Route: 058
     Dates: start: 20110915
  2. TESTOSTERONE. [Concomitant]
     Active Substance: TESTOSTERONE
     Route: 065
     Dates: start: 201008, end: 201010
  3. NUTROPIN AQ [Suspect]
     Active Substance: SOMATROPIN
     Indication: GROWTH HORMONE DEFICIENCY
     Dosage: 1.0 MG, 1.8 MG DAILY
     Route: 058
     Dates: start: 20101007, end: 20110101
  4. NUTROPIN AQ [Suspect]
     Active Substance: SOMATROPIN
     Dosage: 1.0 MG, 1.8 MG DAILY
     Route: 058
     Dates: start: 20110103, end: 20110915

REACTIONS (1)
  - Neuropathy peripheral [Recovered/Resolved]
